FAERS Safety Report 9523013 (Version 1)
Quarter: 2013Q3

REPORT INFORMATION
  Report Type: Spontaneous
  Country: US (occurrence: None)
  Receive Date: 20130905
  Receipt Date: 20130905
  Transmission Date: 20140515
  Serious: Yes (Other)
  Sender: FDA-Public Use
  Company Number: 2013037658

PATIENT
  Age: 7 Year
  Sex: Male

DRUGS (1)
  1. IVIG [Suspect]
     Indication: VIRAL MYOCARDITIS
     Dosage: 400 MG/KG QD

REACTIONS (2)
  - Drug ineffective for unapproved indication [None]
  - Viral myocarditis [None]
